FAERS Safety Report 4959153-9 (Version None)
Quarter: 2006Q1

REPORT INFORMATION
  Report Type: 
  Country: None (occurrence: None)
  Receive Date: 20060330
  Receipt Date: 20060330
  Transmission Date: 20060701
  Serious: Yes (Death)
  Sender: FDA-Public Use
  Company Number: None

PATIENT
  Age: 53 Year
  Sex: Male

DRUGS (1)
  1. REVLIMID [Suspect]
     Indication: NON-HODGKIN'S LYMPHOMA
     Dosage: 25 MG DAILY FOR 21 DAYS PO
     Route: 048
     Dates: start: 20060227, end: 20060319

REACTIONS (6)
  - DEPRESSED LEVEL OF CONSCIOUSNESS [None]
  - HYPERGLYCAEMIA [None]
  - LYMPHATIC OBSTRUCTION [None]
  - OBSTRUCTION GASTRIC [None]
  - THERAPY NON-RESPONDER [None]
  - URINE OUTPUT DECREASED [None]
